FAERS Safety Report 17753676 (Version 3)
Quarter: 2020Q2

REPORT INFORMATION
  Report Type: Report from Study
  Country: GB (occurrence: US)
  Receive Date: 20200507
  Receipt Date: 20200603
  Transmission Date: 20200714
  Serious: Yes (Other)
  Sender: FDA-Public Use
  Company Number: GB-AUROBINDO-AUR-APL-2020-021695

PATIENT
  Age: 30 Year
  Sex: Female

DRUGS (3)
  1. EMTRICITABINE AND TENOFOVIR [Suspect]
     Active Substance: EMTRICITABINE\TENOFOVIR
     Indication: HIV INFECTION
     Dosage: 500 MILLIGRAM, ONCE A DAY (SECOND TRIMESTER)
     Route: 048
     Dates: start: 20200413
  2. EMTRICITABINE AND TENOFOVIR [Suspect]
     Active Substance: EMTRICITABINE\TENOFOVIR
     Dosage: 1 DOSAGE FORM, ONCE A DAY
     Route: 048
     Dates: start: 20200413
  3. TIVICAY [Suspect]
     Active Substance: DOLUTEGRAVIR SODIUM
     Indication: HIV INFECTION
     Dosage: 50 MILLIGRAM, ONCE A DAY (SECOND TRIMESTER)
     Route: 048
     Dates: start: 20200413

REACTIONS (1)
  - Maternal exposure during pregnancy [Unknown]
